FAERS Safety Report 14802413 (Version 2)
Quarter: 2018Q4

REPORT INFORMATION
  Report Type: Spontaneous
  Country: US (occurrence: US)
  Receive Date: 20180424
  Receipt Date: 20181023
  Transmission Date: 20190204
  Serious: No
  Sender: FDA-Public Use
  Company Number: US-PURDUE-USA-2018-0143200

PATIENT
  Sex: Female
  Weight: 86.17 kg

DRUGS (1)
  1. OXYCONTIN [Suspect]
     Active Substance: OXYCODONE HYDROCHLORIDE
     Indication: PRODUCT USED FOR UNKNOWN INDICATION
     Dosage: 40 MG, UNK
     Route: 048
     Dates: start: 1998

REACTIONS (5)
  - Unevaluable event [Unknown]
  - Anger [Unknown]
  - Confusional state [Unknown]
  - Mental impairment [Unknown]
  - Mood swings [Unknown]
